FAERS Safety Report 6293815-9 (Version None)
Quarter: 2009Q3

REPORT INFORMATION
  Report Type: 
  Country: None (occurrence: None)
  Receive Date: 20090803
  Receipt Date: 20090724
  Transmission Date: 20100115
  Serious: Yes (Hospitalization)
  Sender: FDA-Public Use
  Company Number: PHHY2009AT31526

PATIENT
  Age: 83 Year
  Sex: Female
  Weight: 64 kg

DRUGS (5)
  1. DICLOFENAC [Suspect]
     Dosage: 100 MG, UNK
  2. COSAAR PLUS [Concomitant]
     Dosage: 62.5 MG, QD
     Route: 048
  3. COZAAR [Concomitant]
     Dosage: 12.5 MG, QD
     Route: 048
  4. ASPIRIN [Concomitant]
     Dosage: 100 MG, QD
     Route: 048
  5. AMLODIPINE MALEATE [Concomitant]
     Dosage: 10 MG, QD

REACTIONS (2)
  - COLITIS ISCHAEMIC [None]
  - DIARRHOEA [None]
